FAERS Safety Report 4544014-X (Version None)
Quarter: 2005Q1

REPORT INFORMATION
  Report Type: 
  Country: None (occurrence: None)
  Receive Date: 20050104
  Receipt Date: 20041227
  Transmission Date: 20050727
  Serious: Yes (Other)
  Sender: FDA-Public Use
  Company Number: AT-ROCHE-390729

PATIENT
  Age: 11 Year
  Sex: Male
  Weight: 37 kg

DRUGS (6)
  1. ROCEPHIN [Suspect]
     Route: 065
     Dates: start: 20041027, end: 20041029
  2. PARKEMED [Concomitant]
     Indication: BONE PAIN
     Dates: start: 20041020, end: 20041029
  3. PROXEN [Concomitant]
     Indication: BONE PAIN
     Dates: start: 20041020, end: 20041029
  4. REFOBACIN [Concomitant]
     Indication: BONE PAIN
     Dates: start: 20041027, end: 20041029
  5. VOLTAREN [Concomitant]
     Dates: start: 20041021, end: 20041029
  6. TRAMAL [Concomitant]
     Indication: BONE PAIN
     Dates: start: 20041022, end: 20041025

REACTIONS (6)
  - CHILLS [None]
  - HAEMOLYSIS [None]
  - HYPERTENSION [None]
  - PYREXIA [None]
  - RENAL FAILURE ACUTE [None]
  - SKIN EXFOLIATION [None]
